FAERS Safety Report 8917275 (Version 2)
Quarter: 2013Q2

REPORT INFORMATION
  Report Type: Spontaneous
  Country: US (occurrence: US)
  Receive Date: 20121120
  Receipt Date: 20130426
  Transmission Date: 20140414
  Serious: Yes (Hospitalization, Other)
  Sender: FDA-Public Use
  Company Number: US-BAYER-2012-118972

PATIENT
  Age: 42 Year
  Sex: Female
  Weight: 76.64 kg

DRUGS (6)
  1. GIANVI [Suspect]
     Dosage: UNK
     Dates: start: 20111214, end: 20120306
  2. XYZAL [Concomitant]
     Dosage: 5 MG, DAILY
     Route: 048
     Dates: start: 20120319
  3. SYNTHROID [Concomitant]
     Dosage: 125 MCG, DAILY
     Route: 048
     Dates: start: 20120319
  4. NEXIUM [Concomitant]
     Dosage: 40 MG, DAILY
     Route: 048
     Dates: start: 20120319
  5. IRON [Concomitant]
     Dosage: 325 MG, DAILY
     Route: 048
     Dates: start: 20120319
  6. FISH OIL [Concomitant]
     Dosage: DAILY
     Route: 048
     Dates: start: 20120319

REACTIONS (3)
  - Thrombophlebitis superficial [None]
  - Thrombophlebitis superficial [None]
  - Deep vein thrombosis [None]
